FAERS Safety Report 7345609 (Version 4)
Quarter: 2013Q3

REPORT INFORMATION
  Report Type: Spontaneous
  Country: US (occurrence: US)
  Receive Date: 20100406
  Receipt Date: 20130809
  Transmission Date: 20140515
  Serious: Yes (Hospitalization)
  Sender: FDA-Public Use
  Company Number: US-BAYER-201018200NA

PATIENT
  Age: 48 Year
  Sex: Female
  Weight: 68.03 kg

DRUGS (6)
  1. YAZ [Suspect]
     Indication: CONTRACEPTION
     Dosage: UNK UNK, UNK
     Route: 048
     Dates: start: 200702, end: 20070311
  2. YAZ [Suspect]
     Indication: MENORRHAGIA
  3. YASMIN [Suspect]
     Indication: CONTRACEPTION
     Dosage: UNK
     Route: 048
     Dates: end: 200702
  4. YASMIN [Suspect]
     Indication: MENORRHAGIA
  5. DERMATOLOGICALS [Concomitant]
     Indication: FUNGAL SKIN INFECTION
     Dosage: UNK UNK, PRN
  6. LOTRONEX [Concomitant]
     Indication: IRRITABLE BOWEL SYNDROME

REACTIONS (6)
  - Deep vein thrombosis [Unknown]
  - Thrombosis [Unknown]
  - Pulmonary embolism [Recovered/Resolved]
  - Chest pain [Recovered/Resolved]
  - Pulmonary thrombosis [Recovered/Resolved]
  - Pain in extremity [Unknown]
